FAERS Safety Report 14794150 (Version 1)
Quarter: 2018Q2

REPORT INFORMATION
  Report Type: Report from Study
  Country: ES (occurrence: ES)
  Receive Date: 20180423
  Receipt Date: 20180423
  Transmission Date: 20180711
  Serious: Yes (Life-Threatening, Hospitalization)
  Sender: FDA-Public Use
  Company Number: ES-TEVA-2018-ES-885169

PATIENT
  Age: 87 Year
  Sex: Male

DRUGS (6)
  1. ELIQUIS 5 MG FILM-COATED TABLET, 60 TABLETS [Concomitant]
     Indication: THROMBOSIS PROPHYLAXIS
     Route: 048
     Dates: start: 20160301, end: 20161017
  2. DILTIAZEM HYDROCHLORIDE (3735CH) [Concomitant]
     Indication: ARRHYTHMIA
     Route: 048
     Dates: start: 20141103
  3. DIAZEPAM (730A) [Interacting]
     Active Substance: DIAZEPAM
     Route: 048
     Dates: start: 20160706, end: 20161007
  4. FENTANYL (1543A) [Suspect]
     Active Substance: FENTANYL
     Indication: ARTHRALGIA
     Route: 062
     Dates: start: 20160226, end: 20161007
  5. GABAPENTIN (2641A) [Interacting]
     Active Substance: GABAPENTIN
     Route: 048
     Dates: start: 201606, end: 20161007
  6. FUROSEMIDE (1615A) [Concomitant]
     Indication: HYPERTENSION
     Route: 048
     Dates: start: 201112

REACTIONS (2)
  - Confusional state [Recovered/Resolved]
  - Drug interaction [Unknown]

NARRATIVE: CASE EVENT DATE: 20161005
